FAERS Safety Report 5372536-0 (Version None)
Quarter: 2007Q2

REPORT INFORMATION
  Report Type: 
  Country: None (occurrence: None)
  Receive Date: 20070625
  Receipt Date: 20070618
  Transmission Date: 20071010
  Serious: Yes (Hospitalization)
  Sender: FDA-Public Use
  Company Number: 2007SP007120

PATIENT
  Age: 55 Year
  Sex: Female
  Weight: 60.3284 kg

DRUGS (9)
  1. PEG-INTRON [Suspect]
     Indication: HEPATITIS C
     Dosage: 80 MCG;QW; SC
     Route: 058
     Dates: start: 20070409, end: 20070411
  2. REBETOL [Suspect]
     Indication: HEPATITIS C
     Dosage: 800 MG;QD; PO
     Route: 048
     Dates: start: 20070409, end: 20070411
  3. ATENOLOL (CON.) [Concomitant]
  4. PREVACID (CON.) [Concomitant]
  5. CLONIDINE (CON.) [Concomitant]
  6. REGLAN (CON.) [Concomitant]
  7. XANAX (CON.) [Concomitant]
  8. HYDROCODONE (CON.) [Concomitant]
  9. IBUPROFEN (CON.) [Concomitant]

REACTIONS (8)
  - ABDOMINAL PAIN LOWER [None]
  - DIARRHOEA [None]
  - HEPATIC CIRRHOSIS [None]
  - HEPATIC STEATOSIS [None]
  - MALLORY-WEISS SYNDROME [None]
  - MELAENA [None]
  - OESOPHAGEAL ULCER [None]
  - PANCREATITIS ACUTE [None]
